FAERS Safety Report 19739838 (Version 1)
Quarter: 2021Q3

REPORT INFORMATION
  Report Type: Report from Study
  Country: US (occurrence: US)
  Receive Date: 20210823
  Receipt Date: 20210823
  Transmission Date: 20211014
  Serious: No
  Sender: FDA-Public Use
  Company Number: NVSC2021US186087

PATIENT
  Sex: Female

DRUGS (2)
  1. TABRECTA [Suspect]
     Active Substance: CAPMATINIB
     Dosage: 300 MG, BID
     Route: 048
  2. TABRECTA [Suspect]
     Active Substance: CAPMATINIB
     Indication: PRODUCT USED FOR UNKNOWN INDICATION
     Dosage: 400 MG, BID
     Route: 048
     Dates: start: 202107

REACTIONS (1)
  - Drug intolerance [Unknown]
